FAERS Safety Report 10527909 (Version 1)
Quarter: 2014Q4

REPORT INFORMATION
  Report Type: Spontaneous
  Country: US (occurrence: US)
  Receive Date: 20141020
  Receipt Date: 20141020
  Transmission Date: 20150528
  Serious: No
  Sender: FDA-Public Use
  Company Number: US-PFIZER INC-2014283921

PATIENT
  Age: 75 Year
  Sex: Male
  Weight: 112 kg

DRUGS (3)
  1. PEPTO-BISMOL [Concomitant]
     Active Substance: BISMUTH SUBSALICYLATE\CALCIUM CARBONATE
     Indication: SCIATICA
     Dosage: 15ML/A TEASPOON, SINGLE
     Route: 048
     Dates: start: 20141013
  2. TRAMADOL HCL [Suspect]
     Active Substance: TRAMADOL HYDROCHLORIDE
     Indication: SCIATICA
     Dosage: 50 MG, UNK
     Route: 048
  3. ADVIL [Suspect]
     Active Substance: IBUPROFEN
     Indication: SCIATICA
     Dosage: 200 MG,  (TAKING 6 A DAY)
     Route: 048
     Dates: start: 201409, end: 20141013

REACTIONS (4)
  - Nausea [Recovering/Resolving]
  - Malaise [Recovering/Resolving]
  - Gastric disorder [Recovering/Resolving]
  - Overdose [Unknown]

NARRATIVE: CASE EVENT DATE: 201409
